FAERS Safety Report 4358712-4 (Version None)
Quarter: 2004Q2

REPORT INFORMATION
  Report Type: 
  Country: None (occurrence: None)
  Receive Date: 20040511
  Receipt Date: 20040427
  Transmission Date: 20050107
  Serious: Yes (Hospitalization)
  Sender: FDA-Public Use
  Company Number: 2004IC000088

PATIENT
  Age: 47 Year
  Sex: Female

DRUGS (2)
  1. BONTRIL PDM [Suspect]
     Indication: ANOREXIA
     Dosage: 35 MG; 3 TIMES A DAY
  2. PHENTERMINE [Suspect]
     Indication: ANOREXIA
     Dosage: SEE IMAGE

REACTIONS (6)
  - GASTRITIS [None]
  - GASTROOESOPHAGEAL REFLUX DISEASE [None]
  - HYPERSENSITIVITY [None]
  - NEPHRITIS INTERSTITIAL [None]
  - RASH [None]
  - RENAL FAILURE ACUTE [None]
